FAERS Safety Report 6882141-2 (Version None)
Quarter: 2010Q3

REPORT INFORMATION
  Report Type: 
  Country: None (occurrence: None)
  Receive Date: 20100729
  Receipt Date: 20100726
  Transmission Date: 20110219
  Serious: Yes (Death, Hospitalization, Other)
  Sender: FDA-Public Use
  Company Number: US-SHIRE-ALL1-2010-03999

PATIENT

DRUGS (8)
  1. FOSRENOL [Suspect]
     Indication: HYPERPHOSPHATAEMIA
     Dosage: 1000 MG, OTHER (WITH MEALS)
     Route: 048
     Dates: start: 20100501
  2. FOSRENOL [Suspect]
     Dosage: 2000 MG, OTHER (TWO 1000 MG. TABLETS WITH MEALS)
     Route: 048
     Dates: start: 20090101
  3. SENSIPAR [Concomitant]
     Indication: PRODUCT USED FOR UNKNOWN INDICATION
     Dosage: 60 MG, UNKNOWN
     Route: 048
  4. ISOSORBIDE [Concomitant]
     Indication: HEART RATE IRREGULAR
     Dosage: UNK MG, UNKNOWN
     Route: 048
  5. FUROSEMIDE [Concomitant]
     Indication: RENAL DISORDER
     Dosage: UNK MG, UNKNOWN
     Route: 048
     Dates: start: 20070101
  6. NEPHROVITE [Concomitant]
     Indication: VITAMIN SUPPLEMENTATION
     Dosage: UNK MG, UNKNOWN
     Route: 048
  7. BENICAR [Concomitant]
     Indication: HYPERTENSION
     Dosage: UNK MG, UNKNOWN
     Route: 048
  8. UNSPECIFIED MEDICATION [Concomitant]
     Indication: PRODUCT USED FOR UNKNOWN INDICATION
     Dosage: UNK MG, UNKNOWN
     Route: 048

REACTIONS (6)
  - CORONARY ARTERY OCCLUSION [None]
  - DEATH [None]
  - HEART RATE DECREASED [None]
  - MYOCARDIAL INFARCTION [None]
  - RESPIRATORY ARREST [None]
  - SYNCOPE [None]
